FAERS Safety Report 19865290 (Version 2)
Quarter: 2021Q4

REPORT INFORMATION
  Report Type: Report from Study
  Country: US (occurrence: US)
  Receive Date: 20210921
  Receipt Date: 20211223
  Transmission Date: 20220303
  Serious: Yes (Hospitalization)
  Sender: FDA-Public Use
  Company Number: US-BAYER-2021-212561

PATIENT
  Age: 43 Year
  Sex: Female

DRUGS (4)
  1. STIVARGA [Suspect]
     Active Substance: REGORAFENIB
     Indication: Brain neoplasm malignant
     Dosage: 160 MG DAILY FOR 21 DAYS
     Route: 048
     Dates: start: 20210728, end: 202108
  2. STIVARGA [Suspect]
     Active Substance: REGORAFENIB
     Indication: Brain neoplasm malignant
     Dosage: 160 MG DAILY FOR 21 DAYS
     Route: 048
     Dates: end: 20211024
  3. BEVACIZUMAB [Concomitant]
     Active Substance: BEVACIZUMAB
     Dosage: UNK
  4. DEXAMETHASONE [Concomitant]
     Active Substance: DEXAMETHASONE
     Dosage: UNK

REACTIONS (7)
  - Electrolyte imbalance [Recovering/Resolving]
  - Mobility decreased [Recovering/Resolving]
  - Dysstasia [Recovering/Resolving]
  - Hypothyroidism [Recovering/Resolving]
  - Asthenia [Recovering/Resolving]
  - Fatigue [Not Recovered/Not Resolved]
  - Off label use [None]

NARRATIVE: CASE EVENT DATE: 20210728
